FAERS Safety Report 6112105-8 (Version None)
Quarter: 2009Q1

REPORT INFORMATION
  Report Type: 
  Country: None (occurrence: None)
  Receive Date: 20090310
  Receipt Date: 20090224
  Transmission Date: 20090719
  Serious: Yes (Hospitalization)
  Sender: FDA-Public Use
  Company Number: 232174K09USA

PATIENT
  Age: 47 Year
  Sex: Female

DRUGS (11)
  1. REBIF [Suspect]
     Indication: MULTIPLE SCLEROSIS
     Dosage: 44 MCG, 3 IN 1 WEEKS, SUBCUTANEOUS
     Route: 058
     Dates: start: 20040611, end: 20080701
  2. LEVOTHYROXINE (LEVOTHYROXINE /00068001/) [Concomitant]
  3. NEXIUM [Concomitant]
  4. VITAMIN B12 [Concomitant]
  5. FOLIC ACID [Concomitant]
  6. HYDROCHLOROTHIAZIDE [Concomitant]
  7. POTASSIUM (POTASSIUM /00031401/ [Concomitant]
  8. AMBIEN CR [Concomitant]
  9. FEXOFENADINE HCL [Concomitant]
  10. SEROQUEL [Concomitant]
  11. TRIAZOLAM [Concomitant]

REACTIONS (3)
  - LUNG CARCINOMA CELL TYPE UNSPECIFIED STAGE II [None]
  - LUNG INFECTION [None]
  - PLEURAL EFFUSION [None]
